FAERS Safety Report 19386289 (Version 1)
Quarter: 2021Q2

REPORT INFORMATION
  Report Type: Spontaneous
  Country: US (occurrence: US)
  Receive Date: 20210605
  Receipt Date: 20210605
  Transmission Date: 20210717
  Serious: Yes (Other)
  Sender: FDA-Public Use
  Company Number: None

PATIENT
  Age: 7 Year
  Sex: Female
  Weight: 18.9 kg

DRUGS (2)
  1. LEVOTHYROXINE. [Concomitant]
     Active Substance: LEVOTHYROXINE
     Dates: start: 20210506
  2. NP THYROID [Suspect]
     Active Substance: LEVOTHYROXINE\LIOTHYRONINE
     Indication: CONGENITAL HYPOTHYROIDISM
     Route: 048
     Dates: start: 20201217, end: 20210603

REACTIONS (4)
  - Recalled product administered [None]
  - Blood thyroid stimulating hormone increased [None]
  - Lethargy [None]
  - Disturbance in attention [None]

NARRATIVE: CASE EVENT DATE: 20210601
